FAERS Safety Report 5447451-4 (Version None)
Quarter: 2007Q3

REPORT INFORMATION
  Report Type: 
  Country: None (occurrence: None)
  Receive Date: 20070905
  Receipt Date: 20070828
  Transmission Date: 20080115
  Serious: Yes (Life-Threatening)
  Sender: FDA-Public Use
  Company Number: 009-21880-07081730

PATIENT
  Age: 67 Year
  Sex: Female
  Weight: 76 kg

DRUGS (4)
  1. REVLIMID [Suspect]
     Indication: 5Q-SYNDROME
     Dosage: 10 MG, DAILY, ORAL
     Route: 048
     Dates: start: 20070619
  2. ENOXAPARIN NATRIUM                   (ENOXAPARIN) [Concomitant]
  3. LMW HEPARIN                (HEPARIN) [Concomitant]
  4. LOVENOX [Concomitant]

REACTIONS (4)
  - AUTOIMMUNE DISORDER [None]
  - COOMBS DIRECT TEST POSITIVE [None]
  - COOMBS INDIRECT TEST POSITIVE [None]
  - HAEMOLYSIS [None]
